FAERS Safety Report 11357450 (Version 1)
Quarter: 2015Q3

REPORT INFORMATION
  Report Type: Spontaneous
  Country: US (occurrence: US)
  Receive Date: 20150803
  Receipt Date: 20150803
  Transmission Date: 20151125
  Serious: No
  Sender: FDA-Public Use
  Company Number: US-ELI_LILLY_AND_COMPANY-US201404001190

PATIENT
  Sex: Male

DRUGS (2)
  1. STRATTERA [Suspect]
     Active Substance: ATOMOXETINE HYDROCHLORIDE
     Indication: ATTENTION DEFICIT/HYPERACTIVITY DISORDER
     Dosage: 1 DF, UNKNOWN
     Route: 065
     Dates: start: 2011, end: 2011
  2. STRATTERA [Suspect]
     Active Substance: ATOMOXETINE HYDROCHLORIDE
     Dosage: 1 DF, UNKNOWN
     Route: 065
     Dates: start: 201403

REACTIONS (5)
  - Dysuria [Unknown]
  - Prostatic disorder [Unknown]
  - Headache [Unknown]
  - Erectile dysfunction [Unknown]
  - Expired product administered [Unknown]

NARRATIVE: CASE EVENT DATE: 201403
